FAERS Safety Report 10742854 (Version 1)
Quarter: 2015Q1

REPORT INFORMATION
  Report Type: Spontaneous
  Country: DK (occurrence: CA)
  Receive Date: 20150127
  Receipt Date: 20150127
  Transmission Date: 20150721
  Serious: Yes (Hospitalization)
  Sender: FDA-Public Use
  Company Number: CA-FRI-1000073854

PATIENT
  Age: 26 Year
  Sex: Female
  Weight: 51 kg

DRUGS (4)
  1. PANTOPRAZOLE [Concomitant]
     Active Substance: PANTOPRAZOLE SODIUM
     Dosage: DAILY DOSE NOT REPORTED.
  2. MODAFINIL. [Concomitant]
     Active Substance: MODAFINIL
     Dosage: DAILY DOSE NOT REPORTED.
  3. ESCITALOPRAM [Suspect]
     Active Substance: ESCITALOPRAM OXALATE
     Indication: DEPRESSION
     Dosage: 20 MG DAILY
     Route: 048
  4. MIRENA [Concomitant]
     Active Substance: LEVONORGESTREL
     Dosage: DAILY DOSE NOT REPORTED.

REACTIONS (4)
  - Urinary retention [Recovered/Resolved]
  - Drug interaction [Recovered/Resolved]
  - Dysuria [Recovered/Resolved]
  - Hypotension [Recovered/Resolved]
